FAERS Safety Report 14579217 (Version 1)
Quarter: 2018Q1

REPORT INFORMATION
  Report Type: Spontaneous
  Country: US (occurrence: US)
  Receive Date: 20180227
  Receipt Date: 20180227
  Transmission Date: 20180509
  Serious: Yes (Other)
  Sender: FDA-Public Use
  Company Number: US-OTSUKA-DJ201404265

PATIENT

DRUGS (1)
  1. ABILIFY [Suspect]
     Active Substance: ARIPIPRAZOLE
     Route: 065

REACTIONS (7)
  - Discomfort [Unknown]
  - Boredom [Unknown]
  - Self-injurious ideation [Unknown]
  - Mental disorder [Unknown]
  - Feeling abnormal [Unknown]
  - Restlessness [Unknown]
  - Tachyphrenia [Unknown]
